FAERS Safety Report 6865823-8 (Version None)
Quarter: 2010Q3

REPORT INFORMATION
  Report Type: 
  Country: None (occurrence: None)
  Receive Date: 20100720
  Receipt Date: 20100705
  Transmission Date: 20110219
  Serious: Yes (Hospitalization, Disabling)
  Sender: FDA-Public Use
  Company Number: 7001485

PATIENT
  Age: 28 Year
  Sex: Male

DRUGS (3)
  1. REBIF [Suspect]
     Indication: MULTIPLE SCLEROSIS
     Dosage: 44 MCG, 3 IN 1 WK, SUBCUTANEOUS
     Route: 058
     Dates: start: 20030506
  2. CARBAMAZEPINE [Concomitant]
  3. NAPROXEN [Concomitant]

REACTIONS (13)
  - AGEUSIA [None]
  - ANOSMIA [None]
  - APHASIA [None]
  - CEREBRAL HAEMORRHAGE [None]
  - GAIT DISTURBANCE [None]
  - HEADACHE [None]
  - MEMORY IMPAIRMENT [None]
  - PERSONALITY CHANGE [None]
  - RASH [None]
  - SKIN LACERATION [None]
  - SUBARACHNOID HAEMORRHAGE [None]
  - TRAUMATIC BRAIN INJURY [None]
  - VOMITING [None]
